FAERS Safety Report 4323188-X (Version None)
Quarter: 2004Q1

REPORT INFORMATION
  Report Type: 
  Country: None (occurrence: None)
  Receive Date: 20040322
  Receipt Date: 20040305
  Transmission Date: 20041129
  Serious: Yes (Hospitalization)
  Sender: FDA-Public Use
  Company Number: 192014

PATIENT
  Age: 50 Year
  Sex: Female

DRUGS (13)
  1. AVONEX [Suspect]
     Indication: MULTIPLE SCLEROSIS
     Dosage: 30 MCG QW IM
     Route: 030
     Dates: start: 20030214, end: 20040101
  2. AVONEX [Suspect]
     Indication: MULTIPLE SCLEROSIS
     Dosage: 30 MCG QW IM
     Route: 030
     Dates: start: 20040101
  3. ALTACE [Concomitant]
  4. CELEBREX [Concomitant]
  5. LANTUS [Concomitant]
  6. GLUCOPHAGE ^UNS^ [Concomitant]
  7. HUMALOG [Concomitant]
  8. ADVAIR DISKUS 100/50 [Concomitant]
  9. SINGULAIR [Concomitant]
  10. LIPITOR [Concomitant]
  11. PROVIGIL [Concomitant]
  12. BACLOFEN [Concomitant]
  13. MG TABS [Concomitant]

REACTIONS (1)
  - ASTHMA [None]
